FAERS Safety Report 18514214 (Version 2)
Quarter: 2022Q4

REPORT INFORMATION
  Report Type: Spontaneous
  Country: US (occurrence: US)
  Receive Date: 20201118
  Receipt Date: 20221208
  Transmission Date: 20230112
  Serious: No
  Sender: FDA-Public Use
  Company Number: US-JNJFOC-20190638164

PATIENT
  Age: 50 Year
  Sex: Female

DRUGS (1)
  1. IMODIUM A-D [Suspect]
     Active Substance: LOPERAMIDE HYDROCHLORIDE
     Indication: Colectomy
     Dosage: 1/2 CUP EVERY NIGHT
     Route: 048
     Dates: start: 200806

REACTIONS (2)
  - Intentional product misuse [Unknown]
  - Product physical consistency issue [Unknown]
